FAERS Safety Report 25837630 (Version 1)
Quarter: 2025Q3

REPORT INFORMATION
  Report Type: Spontaneous
  Country: US (occurrence: US)
  Receive Date: 20250923
  Receipt Date: 20250923
  Transmission Date: 20251021
  Serious: Yes (Hospitalization)
  Sender: ELI LILLY AND COMPANY
  Company Number: US-ELI_LILLY_AND_COMPANY-US202509012650

PATIENT
  Age: 67 Year
  Sex: Female

DRUGS (3)
  1. BASAGLAR [Suspect]
     Active Substance: INSULIN GLARGINE
     Indication: Product used for unknown indication
     Dosage: 30 U, EACH EVENING (AT NIGHT)
     Route: 058
  2. BASAGLAR [Suspect]
     Active Substance: INSULIN GLARGINE
     Dosage: 35 U, EACH EVENING (AT NIGHT)
     Route: 058
  3. PREDNISONE [Suspect]
     Active Substance: PREDNISONE
     Indication: Cardiac failure congestive
     Route: 065

REACTIONS (6)
  - Cardiac failure congestive [Unknown]
  - Infection [Unknown]
  - Dyspnoea [Unknown]
  - Giant cell arteritis [Unknown]
  - Blood glucose increased [Unknown]
  - Accidental underdose [Unknown]
